FAERS Safety Report 12392315 (Version 1)
Quarter: 2016Q2

REPORT INFORMATION
  Report Type: Spontaneous
  Country: GB (occurrence: GB)
  Receive Date: 20160523
  Receipt Date: 20160523
  Transmission Date: 20160815
  Serious: Yes (Other)
  Sender: FDA-Public Use
  Company Number: GB-ROCHE-1761483

PATIENT
  Age: 46 Year
  Sex: Female

DRUGS (3)
  1. INTERFERON ALFA-2A [Suspect]
     Active Substance: INTERFERON ALFA-2A
     Indication: CHRONIC HEPATITIS C
     Route: 058
     Dates: start: 20160202, end: 20160504
  2. RIBAVIRIN. [Suspect]
     Active Substance: RIBAVIRIN
     Indication: CHRONIC HEPATITIS C
     Route: 065
     Dates: start: 20160202, end: 20160504
  3. METHAMPHETAMINE [Concomitant]
     Active Substance: METHAMPHETAMINE
     Route: 065

REACTIONS (5)
  - Limb discomfort [Unknown]
  - Dizziness [Unknown]
  - Nausea [Unknown]
  - Cerebral infarction [Recovering/Resolving]
  - Muscular weakness [Unknown]

NARRATIVE: CASE EVENT DATE: 20160503
